FAERS Safety Report 4809837-8 (Version None)
Quarter: 2005Q4

REPORT INFORMATION
  Report Type: 
  Country: None (occurrence: None)
  Receive Date: 20051026
  Receipt Date: 20051019
  Transmission Date: 20060501
  Serious: Yes (Hospitalization, Other)
  Sender: FDA-Public Use
  Company Number: GB-JNJFOC-20051004099

PATIENT
  Sex: Female
  Weight: 59 kg

DRUGS (9)
  1. REMICADE [Suspect]
     Indication: RHEUMATOID ARTHRITIS
     Route: 042
  2. METHOTREXATE [Concomitant]
     Route: 065
  3. CODEINE PHOSPHATE AND ACETAMINOPHEN [Concomitant]
     Route: 065
  4. CODEINE PHOSPHATE AND ACETAMINOPHEN [Concomitant]
     Route: 065
  5. FLUOXETINE [Concomitant]
     Route: 065
  6. KLIOVANCE [Concomitant]
     Route: 065
  7. KLIOVANCE [Concomitant]
     Route: 065
  8. OMPERAZOLE [Concomitant]
     Route: 065
  9. PERINDOPRIL [Concomitant]
     Route: 065

REACTIONS (1)
  - SYNOVITIS [None]
